FAERS Safety Report 9421998 (Version 2)
Quarter: 2013Q3

REPORT INFORMATION
  Report Type: Spontaneous
  Country: US (occurrence: US)
  Receive Date: 20130726
  Receipt Date: 20130806
  Transmission Date: 20140515
  Serious: Yes (Hospitalization)
  Sender: FDA-Public Use
  Company Number: US-BAYER-2013-090023

PATIENT
  Age: 26 Year
  Sex: Female

DRUGS (15)
  1. YAZ [Suspect]
     Dosage: UNK
     Dates: start: 201108, end: 20111006
  2. ZOLOFT [Concomitant]
     Dosage: 100 MG, AT BEDTIME
  3. ADDERALL XR [Concomitant]
     Dosage: 30 MG, BID
  4. TEMAZEPAM [Concomitant]
     Dosage: 30 MG, AT BEDTIME
  5. TEMAZEPAM [Concomitant]
     Dosage: 10 MG, AS NEEDED
  6. ALEVE [Concomitant]
     Dosage: 1 DF, AS NEEDED
  7. ALBUTEROL [Concomitant]
     Dosage: AS NEEDED
  8. TRAZODONE [Concomitant]
  9. FLEXERIL [Concomitant]
  10. ORAL CONTRACEPTIVE NOS [Concomitant]
  11. PREDNISONE [Concomitant]
     Dosage: 60 MG, UNK
  12. DUONEB [Concomitant]
  13. ADVAIR DISKUS [Concomitant]
  14. LEVAQUIN [Concomitant]
  15. NORCO [Concomitant]

REACTIONS (3)
  - Pulmonary embolism [Recovered/Resolved]
  - Chest pain [Recovered/Resolved]
  - Pleural effusion [None]
